APPROVED DRUG PRODUCT: NYSTATIN
Active Ingredient: NYSTATIN
Strength: 100,000 UNITS/ML
Dosage Form/Route: SUSPENSION;ORAL
Application: A220367 | Product #001 | TE Code: AA
Applicant: STERANCO HEALTHCARE PVT LTD
Approved: Feb 5, 2026 | RLD: No | RS: No | Type: RX